FAERS Safety Report 5373893-1 (Version None)
Quarter: 2007Q2

REPORT INFORMATION
  Report Type: 
  Country: None (occurrence: None)
  Receive Date: 20070628
  Receipt Date: 20070620
  Transmission Date: 20071010
  Serious: Yes (Hospitalization, Other)
  Sender: FDA-Public Use
  Company Number: AT-ABBOTT-07P-009-0372089-00

PATIENT
  Sex: Female

DRUGS (10)
  1. SEVORANE LIQUID FOR INHALATION [Suspect]
     Indication: INDUCTION OF ANAESTHESIA
     Route: 055
     Dates: start: 20070312, end: 20070312
  2. SEVORANE LIQUID FOR INHALATION [Suspect]
     Indication: MAINTENANCE OF ANAESTHESIA
     Route: 055
     Dates: start: 20070312, end: 20070312
  3. MOXIFLOXACIN HYDROCHLORIDE [Concomitant]
     Indication: ANTIBIOTIC PROPHYLAXIS
     Route: 048
     Dates: start: 20070312, end: 20070317
  4. PROPOFOL [Concomitant]
     Indication: ANAESTHESIA
     Dates: start: 20070312, end: 20070312
  5. FENTANYL [Concomitant]
     Indication: ANAESTHESIA
     Route: 042
     Dates: start: 20070312, end: 20070312
  6. ROCURONIUM BROMIDE [Concomitant]
     Indication: ANAESTHESIA
     Route: 042
     Dates: start: 20070312, end: 20070312
  7. ATROPINE SULFATE [Concomitant]
     Indication: ANAESTHESIA
     Route: 042
     Dates: start: 20070312, end: 20070312
  8. NORMASTIGMIN [Concomitant]
     Indication: DRUG USE FOR UNKNOWN INDICATION
     Dates: start: 20070312, end: 20070312
  9. ONDANSETRON [Concomitant]
     Indication: DRUG USE FOR UNKNOWN INDICATION
     Dates: start: 20070312, end: 20070312
  10. HEPARIN-FRACTION, SODIUM SALT [Concomitant]
     Indication: THROMBOSIS PROPHYLAXIS
     Dates: start: 20070311, end: 20070408

REACTIONS (3)
  - HAEMATEMESIS [None]
  - HEPATIC ENZYME INCREASED [None]
  - VOMITING [None]
